FAERS Safety Report 17489289 (Version 1)
Quarter: 2020Q1

REPORT INFORMATION
  Report Type: Spontaneous
  Country: FR (occurrence: FR)
  Receive Date: 20200303
  Receipt Date: 20200303
  Transmission Date: 20200409
  Serious: Yes (Other)
  Sender: FDA-Public Use
  Company Number: NVSC2020FR058256

PATIENT
  Age: 62 Year
  Sex: Female
  Weight: 58 kg

DRUGS (1)
  1. GLIVEC [Suspect]
     Active Substance: IMATINIB MESYLATE
     Indication: GASTRIC NEOPLASM
     Dosage: 1 DF, QD
     Route: 048
     Dates: start: 201610, end: 201803

REACTIONS (1)
  - Complex regional pain syndrome [Recovered/Resolved]

NARRATIVE: CASE EVENT DATE: 201701
